FAERS Safety Report 9181570 (Version 2)
Quarter: 2013Q2

REPORT INFORMATION
  Report Type: Spontaneous
  Country: US (occurrence: US)
  Receive Date: 20130322
  Receipt Date: 20130430
  Transmission Date: 20140414
  Serious: Yes (Other)
  Sender: FDA-Public Use
  Company Number: US-BAYER-2013-032679

PATIENT
  Age: 35 Year
  Sex: Female
  Weight: 90.7 kg

DRUGS (8)
  1. YASMIN [Suspect]
  2. METFORMIN [Concomitant]
  3. LEVOXYL [Concomitant]
  4. PROZAC [Concomitant]
  5. TRAZODONE [Concomitant]
  6. PRILOSEC [Concomitant]
  7. FLONASE [Concomitant]
  8. VICODIN [Concomitant]

REACTIONS (2)
  - Deep vein thrombosis [Recovered/Resolved]
  - Deep vein thrombosis [None]
